FAERS Safety Report 19752628 (Version 6)
Quarter: 2021Q4

REPORT INFORMATION
  Report Type: Report from Study
  Country: PL (occurrence: PL)
  Receive Date: 20210826
  Receipt Date: 20211021
  Transmission Date: 20220304
  Serious: Yes (Hospitalization, Other)
  Sender: FDA-Public Use
  Company Number: PL-CELGENE-POL-20210807044

PATIENT
  Sex: Male

DRUGS (6)
  1. OZANIMOD [Suspect]
     Active Substance: OZANIMOD
     Indication: Multiple sclerosis
     Route: 048
     Dates: start: 20160409, end: 20211008
  2. Carzap [Concomitant]
     Indication: Hypertension
     Dosage: 8 MILLIGRAM
     Route: 048
  3. Spermicide [Concomitant]
     Indication: Contraception
     Dosage: 1 (OTHER)
     Route: 050
  4. DITROPAN [Concomitant]
     Active Substance: OXYBUTYNIN CHLORIDE
     Indication: Micturition urgency
     Dosage: 5 MILLIGRAM
     Route: 048
     Dates: start: 20170331
  5. Hepatil [Concomitant]
     Indication: Amino acid level increased
     Dosage: 150 MILLIGRAM
     Route: 048
     Dates: start: 20190601
  6. SILDENAFIL [Concomitant]
     Active Substance: SILDENAFIL
     Indication: Sexual dysfunction
     Dosage: 50 MILLIGRAM
     Route: 048
     Dates: start: 20181110

REACTIONS (1)
  - Basal cell carcinoma [Recovered/Resolved]

NARRATIVE: CASE EVENT DATE: 20210817
